FAERS Safety Report 26006474 (Version 1)
Quarter: 2025Q4

REPORT INFORMATION
  Report Type: Spontaneous
  Country: US (occurrence: US)
  Receive Date: 20251106
  Receipt Date: 20251106
  Transmission Date: 20260117
  Serious: No
  Sender: TEVA
  Company Number: US-TEVA-VS-3385458

PATIENT
  Age: 85 Year
  Sex: Female

DRUGS (1)
  1. BUDESONIDE [Suspect]
     Active Substance: BUDESONIDE
     Indication: Sinusitis
     Dosage: INHALATION NEBULES SUSPENSION, 0.5/2MG/ML
     Route: 065

REACTIONS (1)
  - Cough [Not Recovered/Not Resolved]
